FAERS Safety Report 25983514 (Version 1)
Quarter: 2025Q4

REPORT INFORMATION
  Report Type: Spontaneous
  Country: US (occurrence: US)
  Receive Date: 20251031
  Receipt Date: 20251031
  Transmission Date: 20260118
  Serious: Yes (Life-Threatening, Hospitalization, Other)
  Sender: RANBAXY
  Company Number: US-SUN PHARMACEUTICAL INDUSTRIES INC-2025R1-533824

PATIENT
  Age: 43 Year
  Sex: Female

DRUGS (5)
  1. METHIMAZOLE [Suspect]
     Active Substance: METHIMAZOLE
     Indication: Graves^ disease
     Dosage: 40 MILLIGRAM EVERY 12 H
     Route: 065
  2. PROPYLTHIOURACIL [Suspect]
     Active Substance: PROPYLTHIOURACIL
     Indication: Graves^ disease
     Dosage: 200 MILLIGRAM EVERY 4 H
     Route: 065
  3. DEXAMETHASONE [Concomitant]
     Active Substance: DEXAMETHASONE
     Indication: Graves^ disease
     Dosage: 6 MILLIGRAM
     Route: 065
  4. METOPROLOL [Concomitant]
     Active Substance: METOPROLOL
     Indication: Graves^ disease
     Dosage: UNK
     Route: 065
  5. REMDESIVIR [Concomitant]
     Active Substance: REMDESIVIR
     Indication: Graves^ disease
     Dosage: SINGLE DOSE OF 100 MILLIGRAM
     Route: 065

REACTIONS (6)
  - Drug-induced liver injury [Recovered/Resolved]
  - Treatment noncompliance [Unknown]
  - Hyperthyroidism [Recovered/Resolved]
  - COVID-19 [Recovered/Resolved]
  - Acute hepatic failure [Recovered/Resolved]
  - Hepatotoxicity [Recovered/Resolved]
